FAERS Safety Report 6469074-0 (Version None)
Quarter: 2009Q4

REPORT INFORMATION
  Report Type: 
  Country: None (occurrence: None)
  Receive Date: 20091203
  Receipt Date: 20090120
  Transmission Date: 20100525
  Serious: Yes (Death, Other)
  Sender: FDA-Public Use
  Company Number: US-ELI_LILLY_AND_COMPANY-US200701005679

PATIENT
  Sex: Female
  Weight: 27.21 kg

DRUGS (10)
  1. ZYPREXA [Suspect]
     Indication: AGITATION
     Dosage: 2.5 MG, DAILY (1/D)
     Dates: start: 20031119, end: 20030101
  2. ZYPREXA [Suspect]
     Dosage: 5 MG, DAILY (1/D)
     Dates: start: 20030101, end: 20031209
  3. ZYPREXA [Suspect]
     Dosage: 7.5 MG, DAILY (1/D)
     Dates: start: 20031210, end: 20040501
  4. REMERON [Concomitant]
     Dosage: 40 MG, UNK
  5. SEROQUEL [Concomitant]
     Dosage: 40 MG, UNK
  6. XANAX [Concomitant]
  7. SYNTHROID [Concomitant]
  8. MOBIC [Concomitant]
  9. METOPROLOL TARTRATE [Concomitant]
  10. LIPITOR [Concomitant]

REACTIONS (13)
  - AGITATION [None]
  - AKATHISIA [None]
  - CONFUSIONAL STATE [None]
  - DEATH [None]
  - DEPRESSION [None]
  - DYSPHAGIA [None]
  - EATING DISORDER [None]
  - GAIT DISTURBANCE [None]
  - GENERAL PHYSICAL HEALTH DETERIORATION [None]
  - PNEUMONIA ASPIRATION [None]
  - SOMNOLENCE [None]
  - SPEECH DISORDER [None]
  - WEIGHT DECREASED [None]
